FAERS Safety Report 9504510 (Version 2)
Quarter: 2015Q2

REPORT INFORMATION
  Report Type: Spontaneous
  Country: JP (occurrence: JP)
  Receive Date: 20130906
  Receipt Date: 20150513
  Transmission Date: 20150821
  Serious: Yes (Death, Other)
  Sender: FDA-Public Use
  Company Number: PHHY2013JP097269

PATIENT
  Sex: Female

DRUGS (1)
  1. CHLORPHENIRAMINE [Suspect]
     Active Substance: CHLORPHENIRAMINE
     Indication: PRODUCT USED FOR UNKNOWN INDICATION
     Route: 065

REACTIONS (9)
  - Accidental overdose [Fatal]
  - Fall [Fatal]
  - Rib fracture [Unknown]
  - Fractured coccyx [Unknown]
  - Periorbital contusion [Unknown]
  - Respiratory distress [Fatal]
  - Accidental death [Fatal]
  - Contusion [Unknown]
  - Cervical vertebral fracture [Fatal]
